FAERS Safety Report 8451018-3 (Version None)
Quarter: 2012Q2

REPORT INFORMATION
  Report Type: 
  Country: None (occurrence: None)
  Receive Date: 20120620
  Receipt Date: 20120609
  Transmission Date: 20120825
  Serious: Yes (Other)
  Sender: FDA-Public Use
  Company Number: JP-ROCHE-1072950

PATIENT
  Sex: Male
  Weight: 58 kg

DRUGS (9)
  1. VISUDYNE [Suspect]
     Dates: start: 20120122
  2. AVASTIN [Suspect]
     Indication: AGE-RELATED MACULAR DEGENERATION
     Dates: start: 20091001
  3. LUCENTIS [Suspect]
     Dates: start: 20090528
  4. LUCENTIS [Suspect]
     Indication: AGE-RELATED MACULAR DEGENERATION
     Route: 050
     Dates: start: 20090428
  5. LUCENTIS [Suspect]
     Dates: start: 20091211
  6. VISUDYNE [Suspect]
     Indication: AGE-RELATED MACULAR DEGENERATION
     Dates: start: 20091016
  7. AVASTIN [Suspect]
     Dates: start: 20100218
  8. LUCENTIS [Suspect]
     Dates: start: 20090625
  9. AVASTIN [Suspect]
     Dates: start: 20100114

REACTIONS (3)
  - CHOROIDAL NEOVASCULARISATION [None]
  - RETINAL HAEMORRHAGE [None]
  - RETINAL PIGMENT EPITHELIAL TEAR [None]
